FAERS Safety Report 18285139 (Version 1)
Quarter: 2020Q3

REPORT INFORMATION
  Report Type: Spontaneous
  Country: US (occurrence: US)
  Receive Date: 20200918
  Receipt Date: 20200918
  Transmission Date: 20201103
  Serious: No
  Sender: FDA-Public Use
  Company Number: US-PFIZER INC-2020359205

PATIENT
  Age: 86 Year
  Sex: Female
  Weight: 56.7 kg

DRUGS (2)
  1. FULVESTRANT. [Concomitant]
     Active Substance: FULVESTRANT
     Indication: ANTIOESTROGEN THERAPY
     Dosage: UNK (2 SHOTS ONCE A WEEK FOR 3 DOSES, THEN ONCE A MONTH)
  2. IBRANCE [Suspect]
     Active Substance: PALBOCICLIB
     Indication: BREAST CANCER METASTATIC
     Dosage: 100 MG, CYCLIC (100MG ONCE A DAY BY MOUTH FOR 3 WEEKS THEN OFF 1 WEEK)
     Route: 048
     Dates: start: 20200826

REACTIONS (4)
  - Fatigue [Unknown]
  - Back pain [Unknown]
  - Asthenia [Unknown]
  - Insomnia [Unknown]
